FAERS Safety Report 8115414-6 (Version None)
Quarter: 2012Q1

REPORT INFORMATION
  Report Type: 
  Country: None (occurrence: None)
  Receive Date: 20120206
  Receipt Date: 20120126
  Transmission Date: 20120608
  Serious: Yes (Life-Threatening, Hospitalization, Other)
  Sender: FDA-Public Use
  Company Number: MX-SANOFI-AVENTIS-2012SA005857

PATIENT
  Age: 55 Year
  Sex: Female
  Weight: 71 kg

DRUGS (6)
  1. BI-EUGLUCON [Concomitant]
     Indication: TYPE 2 DIABETES MELLITUS
     Dosage: DOSE:1 UNIT(S)
     Route: 048
     Dates: start: 20090101
  2. AMLODIPINE [Concomitant]
     Route: 048
     Dates: start: 20090101
  3. CLOPIDOGREL BISULFATE [Concomitant]
     Indication: THROMBOSIS PROPHYLAXIS
     Route: 048
     Dates: start: 20100101, end: 20110701
  4. PLAVIX [Suspect]
     Indication: THROMBOSIS PROPHYLAXIS
     Route: 048
     Dates: start: 20110701, end: 20111101
  5. ASPIRIN [Concomitant]
     Route: 048
     Dates: start: 20100101
  6. IRBESARTAN [Suspect]
     Route: 048
     Dates: start: 20090101, end: 20110912

REACTIONS (4)
  - HYPERTENSION [None]
  - SKIN DISORDER [None]
  - ABDOMINAL DISCOMFORT [None]
  - MYOCARDIAL INFARCTION [None]
